FAERS Safety Report 16109003 (Version 1)
Quarter: 2019Q1

REPORT INFORMATION
  Report Type: Spontaneous
  Country: US (occurrence: US)
  Receive Date: 20190323
  Receipt Date: 20190323
  Transmission Date: 20190418
  Serious: Yes (Other)
  Sender: FDA-Public Use
  Company Number: US-THERAPEUTICSMD-2019TMD00020

PATIENT
  Age: 65 Year
  Sex: Female
  Weight: 56.24 kg

DRUGS (3)
  1. UNSPECIFIED VITAMIN [Concomitant]
     Active Substance: VITAMINS
  2. IMVEXXY [Suspect]
     Active Substance: ESTRADIOL
     Dosage: 10 ?G, 2X/WEEK (IN THE AFTERNOON)
     Route: 067
     Dates: start: 2018, end: 20190103
  3. IMVEXXY [Suspect]
     Active Substance: ESTRADIOL
     Indication: VULVOVAGINAL DRYNESS
     Dosage: 10 ?G, 2X/WEEK (IN THE AFTERNOON)
     Route: 067
     Dates: start: 2018, end: 2018

REACTIONS (5)
  - Muscle tightness [Not Recovered/Not Resolved]
  - Hypertension [Unknown]
  - Pain [Not Recovered/Not Resolved]
  - Bone pain [Not Recovered/Not Resolved]
  - Off label use [Recovered/Resolved]

NARRATIVE: CASE EVENT DATE: 2018
